APPROVED DRUG PRODUCT: ERGOCALCIFEROL
Active Ingredient: ERGOCALCIFEROL
Strength: 50,000 IU
Dosage Form/Route: CAPSULE;ORAL
Application: A090455 | Product #001 | TE Code: AA
Applicant: ONESOURCE SPECIALTY PTE LTD
Approved: Aug 3, 2010 | RLD: No | RS: Yes | Type: RX